FAERS Safety Report 10360772 (Version 3)
Quarter: 2014Q3

REPORT INFORMATION
  Report Type: Spontaneous
  Country: JP (occurrence: JP)
  Receive Date: 20140804
  Receipt Date: 20140908
  Transmission Date: 20150326
  Serious: Yes (Other)
  Sender: FDA-Public Use
  Company Number: JP-PFIZER INC-2014198868

PATIENT
  Age: 78 Year
  Sex: Female

DRUGS (7)
  1. BUFFERIN A (ASPIRIN\HYDROTALCITE) [Suspect]
     Active Substance: ASPIRIN\HYDROTALCITE
     Dosage: 81 MG, DAILY
     Route: 048
  2. NORVASC [Suspect]
     Active Substance: AMLODIPINE BESYLATE
     Indication: HYPERTENSION
     Dosage: 2.5 MG, DAILY
     Route: 048
  3. YAKUBAN [Suspect]
     Active Substance: FLURBIPROFEN
     Dosage: UNK
     Route: 062
  4. NORVASC [Suspect]
     Active Substance: AMLODIPINE BESYLATE
     Indication: ANGINA PECTORIS
  5. REBAMIPIDE [Suspect]
     Active Substance: REBAMIPIDE
     Dosage: 100 MG, DAILY
     Route: 048
  6. ELIQUIS [Suspect]
     Active Substance: APIXABAN
     Indication: CEREBROVASCULAR ACCIDENT PROPHYLAXIS
     Dosage: 5 MG, DAILY
     Route: 048
     Dates: start: 20140708, end: 201407
  7. BUFFERIN A (ASPIRIN\HYDROTALCITE) [Suspect]
     Active Substance: ASPIRIN\HYDROTALCITE
     Route: 048

REACTIONS (3)
  - Nausea [Recovered/Resolved]
  - Anaemia [Unknown]
  - Haematuria [Recovered/Resolved]

NARRATIVE: CASE EVENT DATE: 201407
